FAERS Safety Report 17609764 (Version 1)
Quarter: 2020Q1

REPORT INFORMATION
  Report Type: Spontaneous
  Country: US (occurrence: US)
  Receive Date: 20200330
  Receipt Date: 20200330
  Transmission Date: 20200409
  Serious: Yes (Other)
  Sender: FDA-Public Use
  Company Number: None

PATIENT
  Age: 9 Year
  Sex: Female
  Weight: 34.47 kg

DRUGS (1)
  1. METHYLPHENIDATE CR 18MG [Suspect]
     Active Substance: METHYLPHENIDATE
     Indication: ATTENTION DEFICIT/HYPERACTIVITY DISORDER
     Dosage: ?          OTHER FREQUENCY:QAM;?
     Route: 048

REACTIONS (4)
  - Product substitution issue [None]
  - Disturbance in attention [None]
  - Abnormal behaviour [None]
  - Therapeutic product effect incomplete [None]

NARRATIVE: CASE EVENT DATE: 20200312
